FAERS Safety Report 7364810 (Version 2)
Quarter: 2013Q4

REPORT INFORMATION
  Report Type: Spontaneous
  Country: US (occurrence: US)
  Receive Date: 20100423
  Receipt Date: 20131217
  Transmission Date: 20140711
  Serious: No
  Sender: FDA-Public Use
  Company Number: US-JNJFOC-20100403767

PATIENT
  Sex: Female
  Weight: 95.26 kg

DRUGS (3)
  1. SANDOZ FENTANYL TRANSDERMAL SYSTEM [Suspect]
     Indication: BACK PAIN
     Route: 062
     Dates: start: 2008, end: 200911
  2. XANAX [Concomitant]
     Indication: ANXIETY
     Route: 048
     Dates: start: 2000
  3. ROBAXIN [Concomitant]
     Indication: MUSCLE SPASMS
     Route: 048
     Dates: start: 2006

REACTIONS (4)
  - Product quality issue [Unknown]
  - Wrong technique in drug usage process [Unknown]
  - Wrong technique in drug usage process [Unknown]
  - Inadequate analgesia [Recovered/Resolved]
